FAERS Safety Report 17872020 (Version 2)
Quarter: 2020Q3

REPORT INFORMATION
  Report Type: Spontaneous
  Country: BR (occurrence: BR)
  Receive Date: 20200608
  Receipt Date: 20200908
  Transmission Date: 20201103
  Serious: Yes (Other)
  Sender: FDA-Public Use
  Company Number: BR-JNJFOC-20200603194

PATIENT
  Age: 63 Year
  Sex: Male

DRUGS (1)
  1. RIVAROXABAN [Suspect]
     Active Substance: RIVAROXABAN
     Indication: ATRIAL FIBRILLATION
     Dosage: UNK
     Route: 048
     Dates: start: 201409, end: 20200213

REACTIONS (4)
  - Retinal ischaemia [Unknown]
  - Retinal vessel avulsion [Unknown]
  - Vitreous haemorrhage [Unknown]
  - Blindness [Not Recovered/Not Resolved]
